FAERS Safety Report 14651314 (Version 1)
Quarter: 2018Q1

REPORT INFORMATION
  Report Type: Spontaneous
  Country: US (occurrence: US)
  Receive Date: 20180316
  Receipt Date: 20180316
  Transmission Date: 20180509
  Serious: Yes (Hospitalization)
  Sender: FDA-Public Use
  Company Number: None

PATIENT
  Age: 77 Year
  Sex: Male

DRUGS (1)
  1. CEFAZOLIN [Suspect]
     Active Substance: CEFAZOLIN
     Indication: INFECTION PROPHYLAXIS
     Route: 042
     Dates: start: 20180228, end: 20180302

REACTIONS (2)
  - Pyrexia [None]
  - Eosinophilia [None]

NARRATIVE: CASE EVENT DATE: 20180304
